FAERS Safety Report 10014160 (Version 1)
Quarter: 2014Q1

REPORT INFORMATION
  Report Type: Spontaneous
  Country: US (occurrence: US)
  Receive Date: 20140317
  Receipt Date: 20140317
  Transmission Date: 20141002
  Serious: No
  Sender: FDA-Public Use
  Company Number: US-BIOGENIDEC-2014BI023932

PATIENT
  Sex: Male

DRUGS (6)
  1. TYSABRI [Suspect]
     Indication: MULTIPLE SCLEROSIS
     Route: 042
     Dates: start: 20120612
  2. COPAXONE [Concomitant]
     Indication: MULTIPLE SCLEROSIS
  3. CALCITRIOL [Concomitant]
  4. LEVOTHYROXINE [Concomitant]
  5. RANITIDINE [Concomitant]
  6. VITAMIN D [Concomitant]

REACTIONS (8)
  - Gait disturbance [Unknown]
  - Hemiparesis [Unknown]
  - Nocturia [Not Recovered/Not Resolved]
  - Depression [Not Recovered/Not Resolved]
  - Aphasia [Unknown]
  - Musculoskeletal stiffness [Unknown]
  - Ataxia [Not Recovered/Not Resolved]
  - Fatigue [Not Recovered/Not Resolved]
